FAERS Safety Report 11081802 (Version 2)
Quarter: 2015Q2

REPORT INFORMATION
  Report Type: Spontaneous
  Country: FR (occurrence: None)
  Receive Date: 20150429
  Receipt Date: 20150511
  Transmission Date: 20150821
  Serious: Yes (Other)
  Sender: FDA-Public Use
  Company Number: 2015FE01337

PATIENT
  Age: 61 Year
  Sex: Male

DRUGS (3)
  1. PICOPREP [Suspect]
     Active Substance: CITRIC ACID MONOHYDRATE\MAGNESIUM OXIDE\SODIUM PICOSULFATE
     Indication: BOWEL PREPARATION
     Route: 048
     Dates: start: 20150416, end: 20150417
  2. TAREG (VALSARTAN) [Concomitant]
  3. ESOMEPRAZOLE [Concomitant]
     Active Substance: ESOMEPRAZOLE

REACTIONS (4)
  - Loss of consciousness [None]
  - Diarrhoea [None]
  - Syncope [None]
  - Incorrect drug administration rate [None]

NARRATIVE: CASE EVENT DATE: 20150417
